FAERS Safety Report 14620950 (Version 1)
Quarter: 2018Q1

REPORT INFORMATION
  Report Type: Spontaneous
  Country: GB (occurrence: GB)
  Receive Date: 20180309
  Receipt Date: 20180309
  Transmission Date: 20180509
  Serious: Yes (Other)
  Sender: FDA-Public Use
  Company Number: GB-TERSERA THERAPEUTICS, LLC-2043469

PATIENT
  Age: 65 Year
  Sex: Male
  Weight: 74 kg

DRUGS (1)
  1. ZOLADEX [Suspect]
     Active Substance: GOSERELIN ACETATE
     Indication: PROSTATE CANCER
     Route: 042
     Dates: start: 201410, end: 201704

REACTIONS (7)
  - Amnesia [Unknown]
  - Disturbance in attention [Unknown]
  - Fatigue [Unknown]
  - Fibromyalgia [Unknown]
  - Stress [Unknown]
  - Bone pain [Not Recovered/Not Resolved]
  - Anger [Unknown]

NARRATIVE: CASE EVENT DATE: 201504
